FAERS Safety Report 4429867-8 (Version None)
Quarter: 2004Q3

REPORT INFORMATION
  Report Type: 
  Country: None (occurrence: None)
  Receive Date: 20040820
  Receipt Date: 20040813
  Transmission Date: 20050211
  Serious: Yes (Other)
  Sender: FDA-Public Use
  Company Number: US-JNJFOC-20040805751

PATIENT
  Age: 54 Year
  Sex: Female
  Weight: 99.79 kg

DRUGS (2)
  1. LEVAQUIN [Suspect]
     Indication: BRONCHITIS
     Route: 049
     Dates: start: 20040701, end: 20040711
  2. LEVAQUIN [Suspect]
     Indication: SINUSITIS
     Route: 049
     Dates: start: 20040701, end: 20040711

REACTIONS (1)
  - MENISCUS LESION [None]
